FAERS Safety Report 6660463-8 (Version None)
Quarter: 2010Q1

REPORT INFORMATION
  Report Type: 
  Country: None (occurrence: None)
  Receive Date: 20100331
  Receipt Date: 20100324
  Transmission Date: 20100710
  Serious: Yes (Hospitalization)
  Sender: FDA-Public Use
  Company Number: FR-NOVOPROD-305617

PATIENT
  Age: 89 Year
  Sex: Female

DRUGS (21)
  1. NOVONORM [Suspect]
     Indication: DIABETES MELLITUS
     Dosage: 6 MG, QD,
     Route: 048
     Dates: start: 20091123, end: 20100115
  2. ZYLORIC                            /00003301/ [Suspect]
     Indication: DRUG USE FOR UNKNOWN INDICATION
     Dosage: 200 MG, UNK
     Route: 048
     Dates: start: 20091127, end: 20100104
  3. MANIDIPINE [Concomitant]
  4. PRAZOSIN [Concomitant]
  5. ALTEIS [Concomitant]
  6. LASIX [Concomitant]
  7. NEBILOX [Concomitant]
  8. EPINITRIL [Concomitant]
  9. PLAVIX [Concomitant]
  10. ZOCOR [Concomitant]
  11. BETASERC                           /00141801/ [Concomitant]
  12. AERIUS                             /01009701/ [Concomitant]
     Dosage: UNK
     Dates: start: 20100102
  13. NEO-MERCAZOLE TAB [Concomitant]
     Dosage: UNK
     Dates: end: 20091201
  14. LEVEMIR [Concomitant]
  15. LANTUS [Concomitant]
     Dosage: UNK
     Dates: start: 20091123
  16. AMAREL [Concomitant]
  17. METFORMIN (GLUCOPHAGE) [Concomitant]
  18. TAHOR [Concomitant]
     Dosage: UNK
     Dates: end: 20100101
  19. BUMEX [Concomitant]
     Dosage: UNK
     Dates: end: 20100129
  20. COAPROVEL [Concomitant]
     Dosage: UNK
     Dates: end: 20100129
  21. MOPRAL                             /00661201/ [Concomitant]

REACTIONS (1)
  - DRUG RASH WITH EOSINOPHILIA AND SYSTEMIC SYMPTOMS [None]
